FAERS Safety Report 6714535-X (Version None)
Quarter: 2010Q2

REPORT INFORMATION
  Report Type: 
  Country: None (occurrence: None)
  Receive Date: 20100506
  Receipt Date: 20100427
  Transmission Date: 20101027
  Serious: Yes (Hospitalization)
  Sender: FDA-Public Use
  Company Number: SA-WATSON-2010-05795

PATIENT
  Age: 50 Year
  Sex: Male

DRUGS (4)
  1. PREDNISONE [Suspect]
     Indication: B-CELL LYMPHOMA
     Dosage: 100 MG, DAILY
  2. CYCLOPHOSPHAMIDE [Suspect]
     Indication: B-CELL LYMPHOMA
     Dosage: 750 MG/MM FOR 1 DAY
     Route: 042
  3. DOXORUBICIN HCL [Suspect]
     Indication: B-CELL LYMPHOMA
     Dosage: 50 MG/MM FOR 1 DAY
     Route: 042
  4. VINCRISTINE [Suspect]
     Indication: B-CELL LYMPHOMA
     Dosage: 1.4 MG/MM FOR 1 DAY

REACTIONS (1)
  - GASTROSPLENIC FISTULA [None]
